FAERS Safety Report 9378403 (Version 2)
Quarter: 2013Q3

REPORT INFORMATION
  Report Type: Spontaneous
  Country: US (occurrence: US)
  Receive Date: 20130701
  Receipt Date: 20130722
  Transmission Date: 20140515
  Serious: Yes (Other)
  Sender: FDA-Public Use
  Company Number: US-TEVA-416146USA

PATIENT
  Age: 19 Year
  Sex: Female
  Weight: 65.83 kg

DRUGS (1)
  1. PLAN B ONE-STEP [Suspect]
     Indication: POST COITAL CONTRACEPTION
     Dosage: 1.5 MILLIGRAM DAILY;
     Route: 048
     Dates: start: 20130603, end: 20130603

REACTIONS (3)
  - Pharyngitis streptococcal [Recovered/Resolved]
  - Mucosal discolouration [Recovered/Resolved]
  - Menstruation delayed [Recovered/Resolved]
